FAERS Safety Report 12267343 (Version 13)
Quarter: 2017Q4

REPORT INFORMATION
  Report Type: Report from Study
  Country: BR (occurrence: BR)
  Receive Date: 20160414
  Receipt Date: 20171010
  Transmission Date: 20180320
  Serious: Yes (Death, Life-Threatening, Hospitalization, Other)
  Sender: FDA-Public Use
  Company Number: PHHY2016BR048546

PATIENT
  Age: 65 Year
  Sex: Male
  Weight: 47 kg

DRUGS (7)
  1. SANDOSTATIN LAR DEPOT [Suspect]
     Active Substance: OCTREOTIDE ACETATE
     Indication: PANCREATITIS
     Dosage: 30 MG, QD
     Route: 030
     Dates: end: 20160602
  2. AFINITOR [Suspect]
     Active Substance: EVEROLIMUS
     Indication: PANCREATIC NEUROENDOCRINE TUMOUR
     Dosage: 10 MG (2 TABLETS OF 5 MG), QD
     Route: 048
     Dates: start: 2010
  3. SANDOSTATIN LAR DEPOT [Suspect]
     Active Substance: OCTREOTIDE ACETATE
     Indication: PANCREATIC NEUROENDOCRINE TUMOUR
     Dosage: 30 MG, QMO (EVERY 28 DAYS)
     Route: 030
     Dates: start: 2002
  4. AFINITOR [Suspect]
     Active Substance: EVEROLIMUS
     Dosage: 10 MG, UNK
     Route: 065
  5. SANDOSTATIN LAR DEPOT [Suspect]
     Active Substance: OCTREOTIDE ACETATE
     Dosage: 10 MG, QMO
     Route: 030
     Dates: end: 201705
  6. SANDOSTATIN LAR DEPOT [Suspect]
     Active Substance: OCTREOTIDE ACETATE
     Dosage: UNK
     Route: 030
     Dates: start: 20160908
  7. AFINITOR [Suspect]
     Active Substance: EVEROLIMUS
     Dosage: 20 MG, QD
     Route: 048
     Dates: start: 2015, end: 201602

REACTIONS (22)
  - Death [Fatal]
  - Weight decreased [Recovering/Resolving]
  - Back pain [Unknown]
  - Asthenia [Unknown]
  - Gait inability [Recovering/Resolving]
  - Metastases to liver [Unknown]
  - Dizziness [Recovering/Resolving]
  - Product use in unapproved indication [Unknown]
  - Apparent death [Unknown]
  - Pain [Not Recovered/Not Resolved]
  - Malaise [Unknown]
  - Vomiting [Recovering/Resolving]
  - Diarrhoea [Recovering/Resolving]
  - Peripheral swelling [Unknown]
  - Headache [Unknown]
  - Metastases to gastrointestinal tract [Unknown]
  - Inappropriate schedule of drug administration [Unknown]
  - Abdominal pain [Unknown]
  - Sleep disorder due to general medical condition, insomnia type [Unknown]
  - Terminal state [Unknown]
  - Dehydration [Recovering/Resolving]
  - Malignant neoplasm progression [Unknown]

NARRATIVE: CASE EVENT DATE: 2012
